FAERS Safety Report 5885297-3 (Version None)
Quarter: 2008Q3

REPORT INFORMATION
  Report Type: 
  Country: None (occurrence: None)
  Receive Date: 20080916
  Receipt Date: 20080905
  Transmission Date: 20090109
  Serious: Yes (Other)
  Sender: FDA-Public Use
  Company Number: GB-NOVOPROD-279130

PATIENT
  Sex: Male

DRUGS (1)
  1. NOVOLOG MIX 70/30 [Suspect]
     Indication: DIABETES MELLITUS

REACTIONS (5)
  - DYSPNOEA [None]
  - FACE OEDEMA [None]
  - FEELING HOT [None]
  - PALPITATIONS [None]
  - PRURITUS GENERALISED [None]
